FAERS Safety Report 19125698 (Version 3)
Quarter: 2021Q2

REPORT INFORMATION
  Report Type: Report from Study
  Country: US (occurrence: US)
  Receive Date: 20210412
  Receipt Date: 20210510
  Transmission Date: 20210717
  Serious: Yes (Hospitalization)
  Sender: FDA-Public Use
  Company Number: US-JNJFOC-20210320616

PATIENT
  Age: 69 Year
  Sex: Female
  Weight: 96.4 kg

DRUGS (7)
  1. SELEXIPAG [Suspect]
     Active Substance: SELEXIPAG
     Indication: PULMONARY HYPERTENSION
     Dosage: 200MCG IN AM AND 400MCG IN PM
     Route: 048
  2. SELEXIPAG [Suspect]
     Active Substance: SELEXIPAG
     Route: 048
  3. SELEXIPAG [Suspect]
     Active Substance: SELEXIPAG
     Route: 048
  4. REMODULIN [Suspect]
     Active Substance: TREPROSTINIL
     Route: 042
     Dates: start: 202104
  5. OFEV [Concomitant]
     Active Substance: NINTEDANIB
  6. REVATIO [Concomitant]
     Active Substance: SILDENAFIL CITRATE
  7. REMODULIN [Suspect]
     Active Substance: TREPROSTINIL
     Indication: PULMONARY HYPERTENSION
     Route: 042
     Dates: start: 20210407, end: 202104

REACTIONS (15)
  - Diarrhoea [Not Recovered/Not Resolved]
  - Pain in jaw [Not Recovered/Not Resolved]
  - Mobility decreased [Unknown]
  - Dry skin [Not Recovered/Not Resolved]
  - Flushing [Not Recovered/Not Resolved]
  - Fatigue [Unknown]
  - Oedema peripheral [Not Recovered/Not Resolved]
  - Therapy change [Recovered/Resolved]
  - Secretion discharge [Unknown]
  - Contusion [Recovering/Resolving]
  - Dyspnoea [Not Recovered/Not Resolved]
  - Depression [Not Recovered/Not Resolved]
  - Dyspnoea exertional [Unknown]
  - Nausea [Not Recovered/Not Resolved]
  - Headache [Recovering/Resolving]

NARRATIVE: CASE EVENT DATE: 20210304
